FAERS Safety Report 9558355 (Version 1)
Quarter: 2013Q3

REPORT INFORMATION
  Report Type: Report from Study
  Country: MX (occurrence: MX)
  Receive Date: 20130926
  Receipt Date: 20130926
  Transmission Date: 20140515
  Serious: Yes (Hospitalization, Other)
  Sender: FDA-Public Use
  Company Number: PHHY2013MX107463

PATIENT
  Age: 73 Year
  Sex: Male

DRUGS (2)
  1. EXFORGE HCT [Suspect]
     Indication: HYPERTENSION
     Dosage: 1 DF (160/12.5MG), DAILY
     Route: 048
     Dates: start: 201007
  2. INSULIN [Concomitant]
     Indication: DIABETES MELLITUS
     Dosage: UNK UKN, UNK
     Dates: start: 200309

REACTIONS (3)
  - Lumbar hernia [Recovered/Resolved]
  - Back pain [Not Recovered/Not Resolved]
  - Coronary artery stenosis [Not Recovered/Not Resolved]
